FAERS Safety Report 4950829-6 (Version None)
Quarter: 2006Q1

REPORT INFORMATION
  Report Type: 
  Country: None (occurrence: None)
  Receive Date: 20060322
  Receipt Date: 20060315
  Transmission Date: 20060701
  Serious: Yes (Hospitalization)
  Sender: FDA-Public Use
  Company Number: GB-SANOFI-SYNTHELABO-F01200600796

PATIENT
  Sex: Female
  Weight: 86 kg

DRUGS (7)
  1. OXALIPLATIN [Suspect]
     Indication: COLORECTAL CANCER METASTATIC
     Route: 041
     Dates: start: 20060307, end: 20060307
  2. CETUXIMAB [Suspect]
     Dosage: 400 MG/M2 FOLLOWED BY A WEEKLY INFUSION OF 250 MG/M2
     Route: 041
     Dates: start: 20060307, end: 20060307
  3. CAPECITABINE [Suspect]
     Dosage: 1000 MG/M2 (3400 MG) TWICE DAILY DAYS 1-14 EVERY 3 WEEKS
     Route: 048
     Dates: start: 20060308, end: 20060310
  4. BENDROFLUAZIDE [Concomitant]
  5. OMEPRAZOLE [Concomitant]
  6. BECLOMETHASONE DIPROPIONATE [Concomitant]
     Dosage: 4 PUFFS
     Route: 050
  7. VENTOLIN [Concomitant]
     Route: 050

REACTIONS (11)
  - ASTHENIA [None]
  - CEREBROVASCULAR ACCIDENT [None]
  - DIPLOPIA [None]
  - DIZZINESS [None]
  - DYSARTHRIA [None]
  - DYSPNOEA [None]
  - FACIAL PARESIS [None]
  - HYPOKALAEMIA [None]
  - PAIN [None]
  - PAIN IN EXTREMITY [None]
  - URINARY INCONTINENCE [None]
